FAERS Safety Report 8902459 (Version 2)
Quarter: 2013Q1

REPORT INFORMATION
  Report Type: Report from Study
  Country: CA (occurrence: CA)
  Receive Date: 20121112
  Receipt Date: 20130311
  Transmission Date: 20140127
  Serious: Yes (Other)
  Sender: FDA-Public Use
  Company Number: CA-ROCHE-1154146

PATIENT
  Sex: Female

DRUGS (7)
  1. RITUXAN [Suspect]
     Indication: VASCULITIS
     Dosage: LAST DOSE: 14/NOV/2012
     Route: 042
     Dates: start: 20110221
  2. RITUXAN [Suspect]
     Indication: SJOGREN^S SYNDROME
  3. ADVIL [Concomitant]
  4. TYLENOL [Concomitant]
  5. DIPHENHYDRAMINE HYDROCHLORIDE [Concomitant]
     Indication: PREMEDICATION
     Route: 048
     Dates: start: 20110221
  6. ACETAMINOPHEN [Concomitant]
     Indication: PREMEDICATION
     Route: 048
     Dates: start: 20110221
  7. METHYLPREDNISOLONE [Concomitant]
     Indication: PREMEDICATION
     Route: 042
     Dates: start: 20110221

REACTIONS (1)
  - Leukopenia [Not Recovered/Not Resolved]
